FAERS Safety Report 8882655 (Version 1)
Quarter: 2012Q4

REPORT INFORMATION
  Report Type: 
  Country: AR (occurrence: AR)
  Receive Date: 20121102
  Receipt Date: 20121102
  Transmission Date: 20130627
  Serious: Yes (Hospitalization)
  Sender: FDA-Public Use
  Company Number: PHHY2012AR096852

PATIENT
  Age: 59 Year
  Sex: Male

DRUGS (1)
  1. EXFORGE [Suspect]
     Indication: HYPERTENSION
     Dosage: 0.5 DF, half a tablet (valsartan 160mg and amlodipin 5mg) per day
     Route: 048
     Dates: start: 201208, end: 20121023

REACTIONS (4)
  - Appendicitis [Recovered/Resolved]
  - Abdominal pain [Recovered/Resolved]
  - Peritonitis [Recovered/Resolved]
  - Blood pressure decreased [Recovered/Resolved]
